FAERS Safety Report 5303579-0 (Version None)
Quarter: 2007Q2

REPORT INFORMATION
  Report Type: 
  Country: None (occurrence: None)
  Receive Date: 20070420
  Receipt Date: 20070409
  Transmission Date: 20071010
  Serious: Yes (Death, Hospitalization)
  Sender: FDA-Public Use
  Company Number: JP-PFIZER INC-2007029026

PATIENT
  Age: 78 Year
  Sex: Female

DRUGS (3)
  1. CABASER [Suspect]
     Indication: PARKINSON'S DISEASE
     Route: 048
  2. FLOMOX [Suspect]
     Indication: INFECTION PROPHYLAXIS
     Dosage: DAILY DOSE:300MG-FREQ:DAILY
     Route: 048
  3. SELEGILINE HYDROCHLORIDE [Concomitant]
     Indication: PARKINSON'S DISEASE
     Route: 048

REACTIONS (3)
  - FALL [None]
  - JAW FRACTURE [None]
  - PSEUDOMEMBRANOUS COLITIS [None]
